FAERS Safety Report 9319567 (Version 11)
Quarter: 2015Q3

REPORT INFORMATION
  Report Type: Spontaneous
  Country: US (occurrence: US)
  Receive Date: 20130530
  Receipt Date: 20150715
  Transmission Date: 20151125
  Serious: Yes (Hospitalization, Other)
  Sender: FDA-Public Use
  Company Number: US-GLAXOSMITHKLINE-A1007344A

PATIENT
  Age: 42 Year
  Sex: Female
  Weight: 55.4 kg

DRUGS (6)
  1. FLOLAN [Suspect]
     Active Substance: EPOPROSTENOL SODIUM
     Indication: PULMONARY ARTERIAL HYPERTENSION
     Dosage: 142 NG/KG/MIN, CO
     Route: 042
     Dates: start: 20001022
  2. COUMADIN [Concomitant]
     Active Substance: WARFARIN SODIUM
  3. FLOLAN [Suspect]
     Active Substance: EPOPROSTENOL SODIUM
     Dosage: 142 NG/KG/MIN CONTINUOUSLY; CONCENTRATION: 135,000 NG/ML; PUMP RATE: 88 ML/DAY; VIAL STRENGTH:1.5 MG
     Route: 042
     Dates: start: 20001022
  4. FLOLAN [Suspect]
     Active Substance: EPOPROSTENOL SODIUM
     Dosage: 142 NG/KG/MIN (CONCENTRATION 135,000 NG/ML, PUMP RATE 88 ML/DAY, VIAL STRENGTH 1.5 MG/ML), CO
     Route: 042
  5. FLOLAN [Suspect]
     Active Substance: EPOPROSTENOL SODIUM
     Dosage: 142 NG/KG/MIN CONTINUOUSLY
     Route: 042
  6. FLOLAN [Suspect]
     Active Substance: EPOPROSTENOL SODIUM
     Dosage: 142 NG/KG/MIN CONTINUOUSLY; CONCENTRATION: 135,000 NG/ML; PUMP RATE: 88 ML/DAY; VIAL STRENGTH:1.5 MG
     Route: 042
     Dates: start: 20001022

REACTIONS (29)
  - Liver disorder [Unknown]
  - Nephrolithiasis [Unknown]
  - Lymphadenopathy [Unknown]
  - Tympanic membrane perforation [Unknown]
  - Vitamin B12 decreased [Not Recovered/Not Resolved]
  - Abdominal pain [Unknown]
  - Abdominal distension [Unknown]
  - Haemangioma of spleen [Unknown]
  - Neoplasm [Unknown]
  - Aortic arteriosclerosis [Unknown]
  - Ear infection [Unknown]
  - Chest pain [Unknown]
  - Skin warm [Unknown]
  - Device breakage [Unknown]
  - Back pain [Unknown]
  - Bile duct stenosis [Unknown]
  - Lipoma [Unknown]
  - Abdominal tenderness [Unknown]
  - Dyspnoea exertional [Unknown]
  - Biliary dilatation [Unknown]
  - Interstitial lung disease [Unknown]
  - Gastroenteritis viral [Unknown]
  - Influenza [Unknown]
  - Constipation [Unknown]
  - Portal vein stenosis [Unknown]
  - Pancreatic pseudocyst [Unknown]
  - Cholangiocarcinoma [Unknown]
  - Cardiac failure congestive [Unknown]
  - Pneumonia [Unknown]

NARRATIVE: CASE EVENT DATE: 20121225
